FAERS Safety Report 4278171-X (Version None)
Quarter: 2004Q1

REPORT INFORMATION
  Report Type: 
  Country: None (occurrence: None)
  Receive Date: 20040120
  Receipt Date: 20040107
  Transmission Date: 20041129
  Serious: Yes (Other)
  Sender: FDA-Public Use
  Company Number: 230023K04USA

PATIENT
  Sex: Female
  Weight: 72.5755 kg

DRUGS (1)
  1. REBIF [Suspect]
     Indication: MULTIPLE SCLEROSIS
     Dates: start: 20000101

REACTIONS (3)
  - BLOOD PROLACTIN ABNORMAL [None]
  - MULTIPLE SCLEROSIS [None]
  - PITUITARY TUMOUR BENIGN [None]
